FAERS Safety Report 5288450-5 (Version None)
Quarter: 2007Q2

REPORT INFORMATION
  Report Type: 
  Country: None (occurrence: None)
  Receive Date: 20070405
  Receipt Date: 20070330
  Transmission Date: 20071010
  Serious: Yes (Death, Disabling, Other)
  Sender: FDA-Public Use
  Company Number: PHBS2007IT04708

PATIENT
  Age: 43 Year
  Sex: Female

DRUGS (7)
  1. ZOMETA [Suspect]
     Indication: BREAST CANCER RECURRENT
     Dosage: UNK, QMO
     Route: 042
     Dates: start: 20020101, end: 20060501
  2. LH-RH ^FERRING^ [Concomitant]
  3. TAXOL [Concomitant]
     Dosage: UNK, QW
     Dates: start: 20030208, end: 20030621
  4. RADIOTHERAPY [Concomitant]
     Dates: start: 20040301
  5. TAMOXIFEN CITRATE [Concomitant]
  6. CAPECITABINE [Concomitant]
  7. VINORELBINE [Concomitant]

REACTIONS (12)
  - DENTAL CLEANING [None]
  - DYSPHAGIA [None]
  - GASTROOESOPHAGITIS [None]
  - INCONTINENCE [None]
  - MALIGNANT NEOPLASM PROGRESSION [None]
  - METASTASES TO BONE [None]
  - METASTATIC PAIN [None]
  - MYELITIS [None]
  - OESOPHAGECTOMY [None]
  - OSTEONECROSIS [None]
  - PARAPARESIS [None]
  - TUMOUR MARKER INCREASED [None]
